FAERS Safety Report 8160688-9 (Version None)
Quarter: 2012Q1

REPORT INFORMATION
  Report Type: 
  Country: None (occurrence: None)
  Receive Date: 20120223
  Receipt Date: 20120221
  Transmission Date: 20120608
  Serious: Yes (Other)
  Sender: FDA-Public Use
  Company Number: US-PFIZER INC-2012046186

PATIENT
  Sex: Female
  Weight: 54.422 kg

DRUGS (1)
  1. CELEBREX [Suspect]
     Indication: COCCYDYNIA
     Dosage: UNK, 2X/DAY
     Route: 048
     Dates: start: 20111215, end: 20120107

REACTIONS (1)
  - GASTRIC ULCER [None]
